FAERS Safety Report 14577209 (Version 3)
Quarter: 2018Q1

REPORT INFORMATION
  Report Type: Report from Study
  Country: DE (occurrence: DE)
  Receive Date: 20180227
  Receipt Date: 20180328
  Transmission Date: 20180509
  Serious: Yes (Other)
  Sender: FDA-Public Use
  Company Number: DE-BAYER-2017-069378

PATIENT
  Age: 37 Year
  Sex: Female

DRUGS (1)
  1. BETAFERON [Suspect]
     Active Substance: INTERFERON BETA-1B
     Indication: MULTIPLE SCLEROSIS
     Dosage: 250 ?G, QOD
     Route: 058
     Dates: start: 20130304, end: 20180212

REACTIONS (22)
  - Skin mass [Unknown]
  - Dermatitis [Recovering/Resolving]
  - Injection site necrosis [Unknown]
  - Impaired healing [Recovering/Resolving]
  - Injection site injury [Not Recovered/Not Resolved]
  - Scar [Unknown]
  - Skin indentation [Unknown]
  - Injection site mass [Not Recovered/Not Resolved]
  - Impaired healing [Recovering/Resolving]
  - Injection site reaction [Not Recovered/Not Resolved]
  - Injection site discolouration [Unknown]
  - Injection site induration [Not Recovered/Not Resolved]
  - Injection site scar [Recovering/Resolving]
  - Injection site ulcer [Recovering/Resolving]
  - Rash pustular [Unknown]
  - Muscular weakness [None]
  - Skin indentation [Unknown]
  - Injection site reaction [Recovering/Resolving]
  - Injection site pain [Recovered/Resolved]
  - Underweight [Unknown]
  - Injection site inflammation [Recovering/Resolving]
  - Injection site atrophy [Unknown]

NARRATIVE: CASE EVENT DATE: 20170406
